FAERS Safety Report 24936263 (Version 1)
Quarter: 2025Q1

REPORT INFORMATION
  Report Type: Report from Study
  Country: US (occurrence: US)
  Receive Date: 20250206
  Receipt Date: 20250206
  Transmission Date: 20250409
  Serious: Yes (Other)
  Sender: EXELIXIS
  Company Number: US-EXELIXIS-EXL-2024-002199

PATIENT
  Age: 75 Year
  Sex: Male
  Weight: 91.338 kg

DRUGS (25)
  1. CABOMETYX [Suspect]
     Active Substance: CABOZANTINIB S-MALATE
     Indication: Clear cell renal cell carcinoma
     Dosage: 40 MG, QD
     Dates: start: 20241021, end: 20241112
  2. CABOMETYX [Suspect]
     Active Substance: CABOZANTINIB S-MALATE
     Dosage: 40 MG, QOD
  3. CABOMETYX [Suspect]
     Active Substance: CABOZANTINIB S-MALATE
     Dosage: 20 MG, QD
     Dates: start: 20250109
  4. OPDIVO [Suspect]
     Active Substance: NIVOLUMAB
     Indication: Clear cell renal cell carcinoma
     Dosage: UNK UNK, Q2WEEKS
     Dates: start: 20241021, end: 20241112
  5. OPDIVO [Suspect]
     Active Substance: NIVOLUMAB
     Dosage: UNK UNK, Q2WEEKS
  6. CARVEDILOL [Concomitant]
     Active Substance: CARVEDILOL
  7. CLOPIDOGREL [Concomitant]
     Active Substance: CLOPIDOGREL BISULFATE
  8. PROTONIX [Concomitant]
     Active Substance: PANTOPRAZOLE SODIUM
  9. FLOMAX [Concomitant]
     Active Substance: TAMSULOSIN HYDROCHLORIDE
  10. ELIQUIS [Concomitant]
     Active Substance: APIXABAN
  11. LIPITOR [Concomitant]
     Active Substance: ATORVASTATIN CALCIUM
  12. SERTRALINE [Concomitant]
     Active Substance: SERTRALINE HYDROCHLORIDE
  13. TRAMADOL [Concomitant]
     Active Substance: TRAMADOL
  14. HYDROCODONE [Concomitant]
     Active Substance: HYDROCODONE
  15. TYLENOL [Concomitant]
     Active Substance: ACETAMINOPHEN
  16. APIXABAN [Concomitant]
     Active Substance: APIXABAN
  17. ASPIRIN [Concomitant]
     Active Substance: ASPIRIN
  18. GABAPENTIN [Concomitant]
     Active Substance: GABAPENTIN
  19. METOPROLOL TARTRATE [Concomitant]
     Active Substance: METOPROLOL TARTRATE
  20. PANTOPRAZOLE [Concomitant]
     Active Substance: PANTOPRAZOLE
  21. ZOLOFT [Concomitant]
     Active Substance: SERTRALINE HYDROCHLORIDE
  22. AMBIEN [Concomitant]
     Active Substance: ZOLPIDEM TARTRATE
  23. SYNTHROID [Concomitant]
     Active Substance: LEVOTHYROXINE SODIUM
  24. MEDROL [Concomitant]
     Active Substance: METHYLPREDNISOLONE
  25. VITAMIN B12 [Concomitant]
     Active Substance: CYANOCOBALAMIN

REACTIONS (22)
  - Vomiting [Unknown]
  - Nausea [Not Recovered/Not Resolved]
  - Dehydration [Unknown]
  - Diarrhoea [Recovering/Resolving]
  - Malignant neoplasm progression [Unknown]
  - Asthenia [Unknown]
  - Headache [Recovered/Resolved]
  - Dizziness [Recovering/Resolving]
  - Dysphonia [Recovering/Resolving]
  - Pruritus [Unknown]
  - Abnormal loss of weight [Unknown]
  - Decreased appetite [Recovering/Resolving]
  - Urinary tract infection [Unknown]
  - Gait disturbance [Not Recovered/Not Resolved]
  - Muscular weakness [Not Recovered/Not Resolved]
  - Radiculopathy [Unknown]
  - Fall [Recovered/Resolved]
  - Blood pressure decreased [Unknown]
  - Fatigue [Unknown]
  - Back pain [Unknown]
  - Inappropriate schedule of product administration [Unknown]
  - Cholelithiasis [Unknown]

NARRATIVE: CASE EVENT DATE: 20250101
